FAERS Safety Report 9802420 (Version 2)
Quarter: 2014Q1

REPORT INFORMATION
  Report Type: Spontaneous
  Country: US (occurrence: US)
  Receive Date: 20140107
  Receipt Date: 20140303
  Transmission Date: 20141002
  Serious: Yes (Hospitalization, Other)
  Sender: FDA-Public Use
  Company Number: US-GILEAD-2014-0091402

PATIENT
  Sex: Female

DRUGS (4)
  1. LETAIRIS [Suspect]
     Indication: PRODUCT USED FOR UNKNOWN INDICATION
     Dosage: 5 MG, QD
     Route: 048
     Dates: start: 20131210
  2. VENTAVIS [Concomitant]
  3. REVATIO [Concomitant]
  4. OXYGEN [Concomitant]

REACTIONS (2)
  - Diverticulitis [Unknown]
  - Hypersomnia [Unknown]
